FAERS Safety Report 24386961 (Version 1)
Quarter: 2024Q4

REPORT INFORMATION
  Report Type: Report from Study
  Country: ZA (occurrence: ZA)
  Receive Date: 20241002
  Receipt Date: 20241002
  Transmission Date: 20250115
  Serious: Yes (Hospitalization)
  Sender: ABBVIE
  Company Number: ZA-ABBVIE-5849519

PATIENT
  Age: 85 Year
  Sex: Female

DRUGS (1)
  1. OZURDEX [Suspect]
     Active Substance: DEXAMETHASONE
     Indication: Retinal vein occlusion
     Dosage: TIME INTERVAL: AS NECESSARY: FORM STRENGTH: 0.7 MG, FREQUENCY: EVERY SIX MONTHS, LAST ADMIN DATE:...
     Route: 050
     Dates: start: 20240328

REACTIONS (1)
  - Illness [Unknown]

NARRATIVE: CASE EVENT DATE: 20240101
